FAERS Safety Report 8593407 (Version 3)
Quarter: 2014Q1

REPORT INFORMATION
  Report Type: Spontaneous
  Country: US (occurrence: US)
  Receive Date: 20120604
  Receipt Date: 20140108
  Transmission Date: 20141002
  Serious: Yes (Disabling)
  Sender: FDA-Public Use
  Company Number: US-ASTRAZENECA-2012SE34926

PATIENT
  Age: 66 Year
  Sex: Female
  Weight: 79.4 kg

DRUGS (4)
  1. NEXIUM [Suspect]
     Indication: GASTRIC DISORDER
     Route: 048
  2. NEXIUM [Suspect]
     Indication: GASTRIC DISORDER
     Dosage: ONE TO TWO
     Route: 048
  3. PROTONIX [Concomitant]
  4. DEXILANT [Concomitant]

REACTIONS (16)
  - Spinal fracture [Unknown]
  - Osteoporosis [Unknown]
  - Multiple fractures [Unknown]
  - Carpal tunnel syndrome [Unknown]
  - Bone disorder [Unknown]
  - Angina pectoris [Unknown]
  - Arthritis [Unknown]
  - Cataract [Unknown]
  - Peripheral arterial occlusive disease [Unknown]
  - Cardiovascular disorder [Unknown]
  - Vitamin D deficiency [Unknown]
  - Intervertebral disc degeneration [Unknown]
  - Spinal column stenosis [Unknown]
  - Compression fracture [Unknown]
  - Tendon rupture [Unknown]
  - Depression [Unknown]
